FAERS Safety Report 6769499-X (Version None)
Quarter: 2010Q2

REPORT INFORMATION
  Report Type: 
  Country: None (occurrence: None)
  Receive Date: 20100520
  Receipt Date: 20090618
  Transmission Date: 20101027
  Serious: Yes (Other)
  Sender: FDA-Public Use
  Company Number: 2008058896

PATIENT
  Age: 61 Year
  Sex: Female
  Weight: 77 kg

DRUGS (7)
  1. PROVERA [Suspect]
     Indication: HORMONE REPLACEMENT THERAPY
     Dates: start: 19930201, end: 20010826
  2. PREMARIN [Suspect]
     Indication: HORMONE REPLACEMENT THERAPY
     Dates: start: 19930201, end: 20010826
  3. PREMPRO [Suspect]
     Indication: HORMONE REPLACEMENT THERAPY
     Dates: start: 20010801, end: 20020801
  4. ATENOLOL [Concomitant]
  5. VALSARTAN [Concomitant]
  6. AMLODIPINE BESYLATE [Concomitant]
  7. CELEBREX [Concomitant]

REACTIONS (1)
  - BREAST CANCER FEMALE [None]
